FAERS Safety Report 6122032-8 (Version None)
Quarter: 2009Q1

REPORT INFORMATION
  Report Type: 
  Country: None (occurrence: None)
  Receive Date: 20090316
  Receipt Date: 20090303
  Transmission Date: 20090719
  Serious: Yes (Other)
  Sender: FDA-Public Use
  Company Number: FI-1168882

PATIENT
  Age: 9 Year
  Sex: Female

DRUGS (5)
  1. DEXAMETHASONE SODIUM PHOSPHATE [Suspect]
     Indication: IRIDOCYCLITIS
     Dosage: TID OPHTHALMIC
     Route: 047
  2. METHOTREXATE [Concomitant]
  3. INFLIXIMAB (INFLIXIMAB) [Concomitant]
  4. ETANERCEPT (ETANERCEPT) [Concomitant]
  5. CYCLOSPORINE [Concomitant]

REACTIONS (1)
  - ADRENAL INSUFFICIENCY [None]
